FAERS Safety Report 5517382-X (Version None)
Quarter: 2007Q4

REPORT INFORMATION
  Report Type: 
  Country: None (occurrence: None)
  Receive Date: 20071114
  Receipt Date: 20071101
  Transmission Date: 20080405
  Serious: Yes (Life-Threatening, Hospitalization, Other)
  Sender: FDA-Public Use
  Company Number: GR-AMGEN-UK251278

PATIENT
  Age: 59 Year
  Sex: Female

DRUGS (3)
  1. KEPIVANCE [Suspect]
     Indication: BONE MARROW TRANSPLANT
     Route: 042
     Dates: start: 20070927, end: 20071005
  2. MELPHALAN [Concomitant]
     Dates: start: 20071002
  3. ABELCET [Concomitant]
     Dates: start: 20071005

REACTIONS (2)
  - RASH [None]
  - RENAL FAILURE ACUTE [None]
